FAERS Safety Report 11105402 (Version 1)
Quarter: 2015Q2

REPORT INFORMATION
  Report Type: Not Available
  Country: IN (occurrence: IN)
  Receive Date: 20150512
  Receipt Date: 20150512
  Transmission Date: 20150821
  Serious: No
  Sender: FDA-Public Use
  Company Number: IN-LUPIN PHARMACEUTICALS INC.-E2B_00003359

PATIENT
  Sex: Male

DRUGS (3)
  1. COMBUTOL [Suspect]
     Active Substance: ETHAMBUTOL HYDROCHLORIDE
     Indication: TUBERCULOSIS
     Route: 048
     Dates: start: 20140901
  2. MACOX-PLUS [Concomitant]
     Indication: TUBERCULOSIS
     Route: 048
  3. BIOVITAL [Concomitant]
     Indication: SUPPLEMENTATION THERAPY
     Route: 048

REACTIONS (1)
  - Rash [Not Recovered/Not Resolved]

NARRATIVE: CASE EVENT DATE: 201411
